FAERS Safety Report 18359980 (Version 4)
Quarter: 2021Q1

REPORT INFORMATION
  Report Type: Spontaneous
  Country: FR (occurrence: FR)
  Receive Date: 20201008
  Receipt Date: 20210305
  Transmission Date: 20210419
  Serious: Yes (Life-Threatening, Hospitalization, Other)
  Sender: FDA-Public Use
  Company Number: FR-PFIZER INC-2020384088

PATIENT
  Age: 48 Year
  Sex: Male
  Weight: 79 kg

DRUGS (4)
  1. DALACINE [Suspect]
     Active Substance: CLINDAMYCIN
     Indication: STAPHYLOCOCCAL BACTERAEMIA
     Dosage: UNK
     Dates: start: 20170816
  2. DAFALGAN [Concomitant]
     Active Substance: ACETAMINOPHEN
     Indication: PRODUCT USED FOR UNKNOWN INDICATION
     Dosage: UNK
     Dates: start: 20170804
  3. COTRIMOXAZOLE [Suspect]
     Active Substance: SULFAMETHOXAZOLE\TRIMETHOPRIM
     Indication: STAPHYLOCOCCAL BACTERAEMIA
     Dosage: 800/160MG
     Route: 048
     Dates: start: 20170816, end: 20170825
  4. COTRIMOXAZOLE [Suspect]
     Active Substance: SULFAMETHOXAZOLE\TRIMETHOPRIM
     Indication: GASTROINTESTINAL INFECTION
     Dosage: 2 DOSAGE FORM TOTAL
     Route: 042
     Dates: start: 20170826, end: 20170826

REACTIONS (17)
  - Pyrexia [Unknown]
  - Diarrhoea [Unknown]
  - Haematuria [Unknown]
  - Hyperleukocytosis [Unknown]
  - C-reactive protein increased [Unknown]
  - Skin lesion [Unknown]
  - Fatigue [Unknown]
  - Abdominal pain [Unknown]
  - Back pain [Unknown]
  - Drug reaction with eosinophilia and systemic symptoms [Unknown]
  - Hypersensitivity myocarditis [Unknown]
  - Sepsis [Unknown]
  - Hepatocellular injury [Unknown]
  - Acute kidney injury [Unknown]
  - Vomiting [Unknown]
  - Urinary tract pain [Unknown]
  - Pulmonary mass [Unknown]

NARRATIVE: CASE EVENT DATE: 20170824
